FAERS Safety Report 6578486-6 (Version None)
Quarter: 2010Q1

REPORT INFORMATION
  Report Type: 
  Country: None (occurrence: None)
  Receive Date: 20100211
  Receipt Date: 20100202
  Transmission Date: 20100710
  Serious: Yes (Hospitalization)
  Sender: FDA-Public Use
  Company Number: PHHY2009MX55243

PATIENT
  Sex: Female

DRUGS (2)
  1. DIOVAN [Suspect]
     Indication: HYPERTENSION
     Dosage: 2 TABLETS (80 MG) PER DAY
     Dates: start: 20080701, end: 20091112
  2. DIOVAN [Suspect]
     Dosage: 1 TABLET (80 MG) PER DAY
     Dates: start: 20091115

REACTIONS (2)
  - CHOLELITHIASIS [None]
  - GALLBLADDER OPERATION [None]
